FAERS Safety Report 4331438-9 (Version None)
Quarter: 2004Q1

REPORT INFORMATION
  Report Type: 
  Country: None (occurrence: None)
  Receive Date: 20040329
  Receipt Date: 20040317
  Transmission Date: 20041129
  Serious: Yes (Hospitalization)
  Sender: FDA-Public Use
  Company Number: 2004204134US

PATIENT
  Age: 51 Year
  Sex: Female
  Weight: 75.3 kg

DRUGS (4)
  1. CAMPTOSAR [Suspect]
     Indication: GASTRIC CANCER
     Dosage: 125 MG/M2, CYCLIC, IV
     Route: 042
     Dates: start: 20030804, end: 20030811
  2. PS-314 (BORTEZOMIB) [Suspect]
     Indication: GASTRIC CANCER
     Dosage: 1.3 MG/M2, CYCLIC, IV
     Route: 042
     Dates: start: 20030804, end: 20030814
  3. LIPITOR [Concomitant]
  4. PREVACID [Concomitant]

REACTIONS (2)
  - DEHYDRATION [None]
  - INTESTINAL OBSTRUCTION [None]
